FAERS Safety Report 15737754 (Version 1)
Quarter: 2018Q4

REPORT INFORMATION
  Report Type: Report from Study
  Country: PK (occurrence: PK)
  Receive Date: 20181219
  Receipt Date: 20181219
  Transmission Date: 20190205
  Serious: Yes (Other)
  Sender: FDA-Public Use
  Company Number: PK-ROCHE-2230940

PATIENT
  Age: 73 Year
  Sex: Male

DRUGS (2)
  1. RISTOVA [Suspect]
     Active Substance: RITUXIMAB
     Indication: LYMPHOMA
     Route: 042
     Dates: start: 20180731
  2. RISTOVA [Suspect]
     Active Substance: RITUXIMAB
     Route: 042

REACTIONS (1)
  - Weight decreased [Unknown]

NARRATIVE: CASE EVENT DATE: 20181029
